FAERS Safety Report 4301013-0 (Version None)
Quarter: 2004Q1

REPORT INFORMATION
  Report Type: 
  Country: None (occurrence: None)
  Receive Date: 20040219
  Receipt Date: 20040210
  Transmission Date: 20041129
  Serious: Yes (Death)
  Sender: FDA-Public Use
  Company Number: 2004-01-0256

PATIENT
  Age: 70 Year
  Sex: Male
  Weight: 68 kg

DRUGS (6)
  1. INTRON A [Suspect]
     Indication: HEPATITIS C
     Dosage: 6 MU TIW INTRAMUSCULAR
     Route: 030
     Dates: start: 20031213, end: 20031217
  2. REBETOL [Suspect]
     Indication: HEPATITIS C
     Dosage: 800 MG QD ORAL
     Route: 048
     Dates: start: 20031215, end: 20031219
  3. URSODEOXYCHOLIC ACID [Concomitant]
  4. FUROSEMIDE [Concomitant]
  5. FAMOTIDINE [Concomitant]
  6. LOXOPROFEN SODIUM [Concomitant]

REACTIONS (8)
  - CARDIAC FAILURE [None]
  - CEREBRAL HAEMORRHAGE [None]
  - HAEMANGIOMA [None]
  - MYOCARDIAL INFARCTION [None]
  - MYOCARDIAL ISCHAEMIA [None]
  - PYREXIA [None]
  - RENAL CYST [None]
  - SUDDEN DEATH [None]
